FAERS Safety Report 4645565-X (Version None)
Quarter: 2005Q2

REPORT INFORMATION
  Report Type: 
  Country: None (occurrence: None)
  Receive Date: 20050425
  Receipt Date: 20050412
  Transmission Date: 20051028
  Serious: Yes (Disabling)
  Sender: FDA-Public Use
  Company Number: 2005047368

PATIENT
  Sex: Female
  Weight: 74 kg

DRUGS (2)
  1. ZOLOFT [Suspect]
     Indication: DEPRESSION
     Dosage: 200 MG (100 MG, 2 IN 1 D), ORAL
     Route: 048
     Dates: start: 20030101, end: 20050301
  2. ALPRAZOLAM [Concomitant]

REACTIONS (13)
  - AGGRESSION [None]
  - ASTHENIA [None]
  - BACK PAIN [None]
  - COORDINATION ABNORMAL [None]
  - DIFFICULTY IN WALKING [None]
  - DRUG WITHDRAWAL SYNDROME [None]
  - FALL [None]
  - GAIT DISTURBANCE [None]
  - HEADACHE [None]
  - IMPULSE-CONTROL DISORDER [None]
  - MOOD SWINGS [None]
  - MUSCLE RIGIDITY [None]
  - PALPITATIONS [None]
